FAERS Safety Report 15711338 (Version 2)
Quarter: 2019Q1

REPORT INFORMATION
  Report Type: Other
  Country: US (occurrence: US)
  Receive Date: 20181211
  Receipt Date: 20190122
  Transmission Date: 20190417
  Serious: Yes (Other)
  Sender: FDA-Public Use
  Company Number: US-BD MEDICAL-2060055

PATIENT
  Age: 73 Year
  Sex: Female

DRUGS (1)
  1. BD PERSIST [Suspect]
     Active Substance: ALCOHOL\POVIDONE-IODINE
     Route: 061

REACTIONS (1)
  - Skin irritation [Unknown]
